FAERS Safety Report 11509868 (Version 1)
Quarter: 2015Q3

REPORT INFORMATION
  Report Type: Spontaneous
  Country: US (occurrence: US)
  Receive Date: 20150915
  Receipt Date: 20150915
  Transmission Date: 20151125
  Serious: No
  Sender: FDA-Public Use
  Company Number: US-JNJFOC-20150314948

PATIENT
  Age: 14 Year
  Sex: Male

DRUGS (1)
  1. VISINE A.C. [Suspect]
     Active Substance: TETRAHYDROZOLINE HYDROCHLORIDE\ZINC SULFATE
     Indication: EYE PRURITUS
     Route: 050

REACTIONS (2)
  - Eye swelling [Unknown]
  - Eye irritation [Unknown]
